FAERS Safety Report 15082234 (Version 6)
Quarter: 2018Q3

REPORT INFORMATION
  Report Type: Report from Study
  Country: None (occurrence: AU)
  Receive Date: 20180628
  Receipt Date: 20180928
  Transmission Date: 20181010
  Serious: Yes (Hospitalization, Other)
  Sender: FDA-Public Use
  Company Number: AU-ABBVIE-18P-008-2396814-00

PATIENT
  Age: 80 Year
  Sex: Male
  Weight: 55 kg

DRUGS (11)
  1. DUODOPA [Suspect]
     Active Substance: CARBIDOPA\LEVODOPA
     Dosage: MD 10ML; CD 6.3 ML; ED 2ML
     Route: 050
     Dates: start: 20180618, end: 20180627
  2. PARACETAMOL [Concomitant]
     Active Substance: ACETAMINOPHEN
     Indication: PAIN
     Route: 048
     Dates: start: 20170902
  3. DUODOPA [Suspect]
     Active Substance: CARBIDOPA\LEVODOPA
     Dosage: END OF TITRATION MD 6ML;CD 2.8ML; ED 0.8ML 1X/D; 16 HOURS
     Route: 050
     Dates: start: 20170903, end: 20180304
  4. QUETIAPINE. [Concomitant]
     Active Substance: QUETIAPINE
     Indication: ABNORMAL DREAMS
     Route: 048
     Dates: start: 20170804
  5. DUODOPA [Suspect]
     Active Substance: CARBIDOPA\LEVODOPA
     Dosage: MD 6: 0ML; CD 5.0 ML; ED 0.8ML; 5.0ML 1X/D; 24 HOUR
     Route: 050
     Dates: start: 20180305, end: 20180528
  6. COMTAN [Concomitant]
     Active Substance: ENTACAPONE
     Indication: HALLUCINATION
     Route: 048
     Dates: start: 20170804, end: 20180627
  7. COMTAN [Concomitant]
     Active Substance: ENTACAPONE
     Route: 048
     Dates: start: 20180627
  8. MADOPAR RAPID [Concomitant]
     Indication: PARKINSON^S DISEASE
     Dosage: 150/37.5 MG
     Route: 048
  9. DUODOPA [Suspect]
     Active Substance: CARBIDOPA\LEVODOPA
     Indication: PARKINSON^S DISEASE
     Dosage: TITRATION: INITIAL 6ML MD; 2.8ML CD; 0.8ML ED; 1/D; 16 HOUR
     Route: 050
     Dates: start: 20170830, end: 20170902
  10. OXYBUTYNIN. [Concomitant]
     Active Substance: OXYBUTYNIN CHLORIDE
     Indication: BLADDER DISORDER
     Route: 048
     Dates: start: 20170902
  11. PARACETAMOL [Concomitant]
     Active Substance: ACETAMINOPHEN
     Indication: PYREXIA

REACTIONS (4)
  - Inguinal hernia [Recovered/Resolved]
  - Sepsis [Recovered/Resolved]
  - Normocytic anaemia [Not Recovered/Not Resolved]
  - Neuropathy peripheral [Not Recovered/Not Resolved]

NARRATIVE: CASE EVENT DATE: 20180510
